FAERS Safety Report 10545250 (Version 1)
Quarter: 2014Q4

REPORT INFORMATION
  Report Type: Spontaneous
  Country: US (occurrence: US)
  Receive Date: 20141027
  Receipt Date: 20141027
  Transmission Date: 20150529
  Serious: Yes (Other)
  Sender: FDA-Public Use
  Company Number: US-GILEAD-2014-0119654

PATIENT
  Age: 55 Year
  Sex: Male

DRUGS (1)
  1. LETAIRIS [Suspect]
     Active Substance: AMBRISENTAN
     Indication: PRODUCT USED FOR UNKNOWN INDICATION
     Dosage: 10 MG, QD
     Route: 065
     Dates: start: 20140829

REACTIONS (5)
  - Lung infection [Recovering/Resolving]
  - Productive cough [Recovering/Resolving]
  - Hyperventilation [Recovering/Resolving]
  - Syncope [Recovering/Resolving]
  - Sputum discoloured [Recovering/Resolving]
